FAERS Safety Report 20058519 (Version 2)
Quarter: 2021Q4

REPORT INFORMATION
  Report Type: Spontaneous
  Country: US (occurrence: US)
  Receive Date: 20211111
  Receipt Date: 20211118
  Transmission Date: 20220303
  Serious: Yes (Hospitalization)
  Sender: FDA-Public Use
  Company Number: US-RADIUS HEALTH INC.-2021US004904

PATIENT
  Age: 79 Year
  Sex: Female

DRUGS (1)
  1. TYMLOS [Suspect]
     Active Substance: ABALOPARATIDE
     Indication: Osteoporosis
     Dosage: 80 MICROGRAM, QD
     Route: 058
     Dates: start: 20211030, end: 20211030

REACTIONS (5)
  - Atrial fibrillation [Unknown]
  - Electric shock [Unknown]
  - Sensory disturbance [Unknown]
  - Vomiting [Unknown]
  - Heart rate increased [Unknown]

NARRATIVE: CASE EVENT DATE: 20211030
